FAERS Safety Report 21190073 (Version 1)
Quarter: 2022Q3

REPORT INFORMATION
  Report Type: Spontaneous
  Country: GB (occurrence: GB)
  Receive Date: 20220809
  Receipt Date: 20220809
  Transmission Date: 20221027
  Serious: Yes (Other)
  Sender: FDA-Public Use
  Company Number: None

PATIENT
  Age: 52 Year
  Sex: Female
  Weight: 110 kg

DRUGS (1)
  1. PROVERA [Suspect]
     Active Substance: MEDROXYPROGESTERONE ACETATE
     Indication: Uterine leiomyoma
     Dosage: ONCE AT NIGHT
     Dates: start: 20220615, end: 20220727

REACTIONS (1)
  - Pelvic haemorrhage [Recovered/Resolved]

NARRATIVE: CASE EVENT DATE: 20220615
